FAERS Safety Report 4333128-5 (Version None)
Quarter: 2004Q1

REPORT INFORMATION
  Report Type: 
  Country: None (occurrence: None)
  Receive Date: 20040330
  Receipt Date: 20040323
  Transmission Date: 20041129
  Serious: Yes (Other)
  Sender: FDA-Public Use
  Company Number: USA-2002-008640

PATIENT
  Age: 52 Year
  Sex: Female
  Weight: 74.8 kg

DRUGS (24)
  1. BETASERON [Suspect]
     Indication: PROGRESSIVE MULTIPLE SCLEROSIS
     Dosage: 8 MIU, EVERY 2D, SUBCUTANEOUS
     Route: 058
     Dates: start: 19950101
  2. PREMARIN [Concomitant]
  3. CLONIDINE [Concomitant]
  4. DETROL [Concomitant]
  5. ATENOLOL [Concomitant]
  6. PROZAC [Concomitant]
  7. ZYRTEC [Concomitant]
  8. PRILOSEC [Concomitant]
  9. KLONOPIN [Concomitant]
  10. XENICAL [Concomitant]
  11. FLONASE [Concomitant]
  12. FOLIC ACID [Concomitant]
  13. VITAMIN C [Concomitant]
  14. CYANOCOBALAMIN [Concomitant]
  15. MULTIVITE (RETINOL) [Concomitant]
  16. CALCIUM WITH VITAMIN D (CALCIUM SODIUM LACTATE, CALCIUM PHOSPHATE) [Concomitant]
  17. VITAMIN E [Concomitant]
  18. ACETYLSALICYLIC ACID SRT [Concomitant]
  19. CATAPRES-TTS (CLONIDINE) PATCH [Concomitant]
  20. VALDECOXIB (BEXTRA) (VALDECOXIB) [Concomitant]
  21. ZANAFLEX [Concomitant]
  22. ALBUTEROL [Concomitant]
  23. VICODIN [Concomitant]
  24. TRAMADOL HCL [Concomitant]

REACTIONS (3)
  - ALOPECIA [None]
  - BREAST CANCER FEMALE [None]
  - HYPOTRICHOSIS [None]
